FAERS Safety Report 14878253 (Version 1)
Quarter: 2018Q2

REPORT INFORMATION
  Report Type: Spontaneous
  Country: FR (occurrence: FR)
  Receive Date: 20180510
  Receipt Date: 20180510
  Transmission Date: 20180711
  Serious: Yes (Hospitalization)
  Sender: FDA-Public Use
  Company Number: FR-MERCK KGAA-2047594

PATIENT
  Sex: Female

DRUGS (1)
  1. NOVOTHYROX [Suspect]
     Active Substance: LEVOTHYROXINE SODIUM
     Indication: AUTOIMMUNE HYPOTHYROIDISM
     Dates: start: 201705, end: 201710

REACTIONS (17)
  - Photopsia [Recovered/Resolved]
  - Alopecia [Recovered/Resolved]
  - Muscle contracture [Recovered/Resolved]
  - Disturbance in attention [Recovered/Resolved]
  - Hyporeflexia [Recovered/Resolved]
  - Tension [Recovered/Resolved]
  - Multi-vitamin deficiency [Recovered/Resolved]
  - Vision blurred [Recovered/Resolved]
  - Fatigue [Recovered/Resolved]
  - Amnesia [Recovered/Resolved]
  - General physical health deterioration [Recovered/Resolved]
  - Somnolence [Recovered/Resolved]
  - Vitreous floaters [Recovered/Resolved]
  - Loss of personal independence in daily activities [Recovered/Resolved]
  - Migraine [Recovered/Resolved]
  - Irritability [Recovered/Resolved]
  - Asthenia [Recovered/Resolved]
